FAERS Safety Report 10432254 (Version 2)
Quarter: 2015Q3

REPORT INFORMATION
  Report Type: Spontaneous
  Country: US (occurrence: None)
  Receive Date: 20140815
  Receipt Date: 20150129
  Transmission Date: 20151125
  Serious: No
  Sender: FDA-Public Use
  Company Number: A-NJ2014-98687

PATIENT
  Age: 57 Year
  Sex: Female

DRUGS (12)
  1. XALATAN [Concomitant]
     Active Substance: LATANOPROST
  2. TERBUTALINE (TERBUTALINE SULFATE) [Concomitant]
  3. TORSEMIDE (TORASEMIDE) [Concomitant]
  4. DIPHENHYDRAMINE. [Concomitant]
     Active Substance: DIPHENHYDRAMINE
  5. LATANOPROST. [Concomitant]
     Active Substance: LATANOPROST
  6. OPSUMIT [Suspect]
     Active Substance: MACITENTAN
     Indication: PULMONARY ARTERIAL HYPERTENSION
     Route: 048
     Dates: start: 20140424
  7. ALPHAGAN P [Concomitant]
     Active Substance: BRIMONIDINE TARTRATE
  8. ILARIS (CANAKINUMAB) [Concomitant]
  9. SPIRIVA [Concomitant]
     Active Substance: TIOTROPIUM BROMIDE MONOHYDRATE
  10. ALBUTEROL (SALBUTAMOL SULFATE) [Concomitant]
  11. ADCIRCA [Concomitant]
     Active Substance: TADALAFIL
  12. SYMBICORT [Concomitant]
     Active Substance: BUDESONIDE\FORMOTEROL FUMARATE DIHYDRATE

REACTIONS (8)
  - Diarrhoea [None]
  - Dizziness [None]
  - Headache [None]
  - Local swelling [None]
  - Fluid retention [None]
  - Nasal congestion [None]
  - Dry skin [None]
  - Hot flush [None]

NARRATIVE: CASE EVENT DATE: 20140428
